FAERS Safety Report 11497672 (Version 11)
Quarter: 2018Q3

REPORT INFORMATION
  Report Type: Report from Study
  Country: CA (occurrence: CA)
  Receive Date: 20150911
  Receipt Date: 20180919
  Transmission Date: 20181010
  Serious: Yes (Life-Threatening, Hospitalization, Other)
  Sender: FDA-Public Use
  Company Number: CA-INCYTE CORPORATION-2013IN000165

PATIENT

DRUGS (18)
  1. JAKAVI [Suspect]
     Active Substance: RUXOLITINIB
     Dosage: 10 MG, BID
     Route: 048
     Dates: start: 20130109
  2. ASPIRIN                            /00002701/ [Concomitant]
     Active Substance: ASPIRIN
     Indication: PRODUCT USED FOR UNKNOWN INDICATION
     Dosage: 80 MG, QD
     Route: 065
  3. COVERSYL                           /00790702/ [Concomitant]
     Active Substance: PERINDOPRIL
     Indication: PRODUCT USED FOR UNKNOWN INDICATION
     Dosage: UNK
     Route: 065
  4. VITAMIN D                          /00107901/ [Concomitant]
     Active Substance: ERGOCALCIFEROL
     Indication: PRODUCT USED FOR UNKNOWN INDICATION
     Dosage: UNK UNK, QW
     Route: 065
  5. GLUCOPHAGE [Concomitant]
     Active Substance: METFORMIN HYDROCHLORIDE
     Indication: DIABETES MELLITUS
     Dosage: UNK
     Route: 065
  6. MULTI?VIT [Concomitant]
     Active Substance: VITAMINS
     Indication: PRODUCT USED FOR UNKNOWN INDICATION
     Dosage: UNK
     Route: 065
  7. 1?ALPHA [Concomitant]
     Active Substance: ALFACALCIDOL
     Indication: PRODUCT USED FOR UNKNOWN INDICATION
     Dosage: UNK
     Route: 065
  8. DEXAMETHASONE. [Suspect]
     Active Substance: DEXAMETHASONE
     Indication: HYPOACUSIS
     Dosage: 1 PILL FOR THREE DAYS AND NOW HALF A PILL FOR 5 DAYS
     Route: 065
  9. HIDROXINE [Concomitant]
     Active Substance: HYDROXYZINE HYDROCHLORIDE
     Indication: PRODUCT USED FOR UNKNOWN INDICATION
     Dosage: UNK
     Route: 065
  10. HIDROXIZIN [Concomitant]
     Active Substance: HYDROXYZINE HYDROCHLORIDE
     Indication: PRODUCT USED FOR UNKNOWN INDICATION
     Dosage: UNK
     Route: 065
  11. ONGLYZA [Concomitant]
     Active Substance: SAXAGLIPTIN HYDROCHLORIDE
     Indication: PRODUCT USED FOR UNKNOWN INDICATION
     Dosage: UNK
     Route: 065
  12. PANTOLOC                           /01263204/ [Concomitant]
     Active Substance: PANTOPRAZOLE SODIUM
     Indication: PRODUCT USED FOR UNKNOWN INDICATION
     Dosage: UNK
     Route: 065
  13. DIAMICRON [Concomitant]
     Active Substance: GLICLAZIDE
     Indication: PRODUCT USED FOR UNKNOWN INDICATION
     Dosage: 30 MG
     Route: 065
  14. ALFAVIT                            /00566401/ [Concomitant]
     Indication: PRODUCT USED FOR UNKNOWN INDICATION
     Dosage: UNK
     Route: 065
  15. JAKAVI [Suspect]
     Active Substance: RUXOLITINIB
     Indication: MYELOFIBROSIS
     Dosage: 10 MG, QD
     Route: 048
     Dates: start: 20120109
  16. SYNTHROID [Concomitant]
     Active Substance: LEVOTHYROXINE SODIUM
     Indication: PRODUCT USED FOR UNKNOWN INDICATION
     Dosage: UNK
  17. TUMS [Concomitant]
     Active Substance: CALCIUM CARBONATE
     Indication: PRODUCT USED FOR UNKNOWN INDICATION
     Dosage: UNK
     Route: 065
  18. METFORMIN [Concomitant]
     Active Substance: METFORMIN HYDROCHLORIDE
     Indication: DIABETES MELLITUS
     Dosage: UNK

REACTIONS (57)
  - Chest pain [Unknown]
  - Nasopharyngitis [Recovering/Resolving]
  - Influenza [Unknown]
  - Pain in extremity [Recovering/Resolving]
  - Burning sensation [Unknown]
  - Tremor [Unknown]
  - Tinnitus [Unknown]
  - Fatigue [Unknown]
  - Urinary tract infection [Unknown]
  - Acne [Recovering/Resolving]
  - Abdominal pain [Recovered/Resolved]
  - Musculoskeletal chest pain [Unknown]
  - Agoraphobia [Unknown]
  - Dizziness [Unknown]
  - Headache [Unknown]
  - Musculoskeletal pain [Unknown]
  - Blood urine present [Unknown]
  - Neck pain [Unknown]
  - Haemorrhage [Unknown]
  - Vertigo [Unknown]
  - Palpitations [Unknown]
  - Flatulence [Not Recovered/Not Resolved]
  - Faeces discoloured [Unknown]
  - Somnolence [Unknown]
  - Weight increased [Unknown]
  - Dyspepsia [Unknown]
  - Blood pressure increased [Unknown]
  - Labyrinthitis [Unknown]
  - Dyspnoea [Unknown]
  - Constipation [Not Recovered/Not Resolved]
  - Dehydration [Unknown]
  - Depression [Unknown]
  - Asthenia [Unknown]
  - Blood glucose increased [Unknown]
  - Pruritus [Recovering/Resolving]
  - Mouth ulceration [Unknown]
  - Nausea [Unknown]
  - Cough [Recovering/Resolving]
  - Hypoacusis [Recovering/Resolving]
  - Escherichia infection [Unknown]
  - Pyrexia [Recovered/Resolved]
  - Gout [Unknown]
  - Renal pain [Unknown]
  - Oral pain [Unknown]
  - Stress [Unknown]
  - Dysstasia [Unknown]
  - Vomiting [Unknown]
  - Increased appetite [Unknown]
  - Feeling abnormal [Unknown]
  - Pollakiuria [Unknown]
  - Abdominal pain upper [Recovered/Resolved]
  - Rash [Unknown]
  - Bone pain [Unknown]
  - Bronchitis [Unknown]
  - Weight decreased [Unknown]
  - Malaise [Unknown]
  - Insomnia [Unknown]
